FAERS Safety Report 8017072-8 (Version None)
Quarter: 2012Q1

REPORT INFORMATION
  Report Type: 
  Country: None (occurrence: None)
  Receive Date: 20120102
  Receipt Date: 20111230
  Transmission Date: 20120608
  Serious: No
  Sender: FDA-Public Use
  Company Number: PHFR2011GB007055

PATIENT
  Sex: Male
  Weight: 71.6 kg

DRUGS (5)
  1. ASPIRIN [Concomitant]
  2. BISOPROLOL [Concomitant]
  3. SIMVASTATIN [Concomitant]
  4. NICOTINIC ACID [Concomitant]
  5. TASIGNA [Suspect]
     Indication: CHRONIC MYELOID LEUKAEMIA
     Dosage: 400 MG, DAILY
     Route: 048
     Dates: start: 20091118, end: 20111130

REACTIONS (2)
  - DRUG INEFFECTIVE [None]
  - PANCYTOPENIA [None]
